FAERS Safety Report 8056511-3 (Version None)
Quarter: 2012Q1

REPORT INFORMATION
  Report Type: 
  Country: None (occurrence: None)
  Receive Date: 20120119
  Receipt Date: 20120110
  Transmission Date: 20120608
  Serious: Yes (Hospitalization, Other)
  Sender: FDA-Public Use
  Company Number: DE-ELI_LILLY_AND_COMPANY-DE201111004023

PATIENT
  Sex: Female

DRUGS (6)
  1. PANTOZOL [Concomitant]
  2. METOPROLOL SUCCINATE [Concomitant]
  3. FOLSAN [Concomitant]
  4. CARBOPLATIN [Concomitant]
     Dosage: UNK, UNKNOWN
  5. LEVOTHYROXINE SODIUM [Concomitant]
  6. ALIMTA [Suspect]
     Indication: NON-SMALL CELL LUNG CANCER
     Dosage: UNK, UNKNOWN

REACTIONS (1)
  - ANAPHYLACTIC REACTION [None]
